FAERS Safety Report 17583865 (Version 1)
Quarter: 2020Q1

REPORT INFORMATION
  Report Type: Report from Study
  Country: None (occurrence: US)
  Receive Date: 20200326
  Receipt Date: 20200326
  Transmission Date: 20200409
  Serious: Yes (Hospitalization, Other)
  Sender: FDA-Public Use
  Company Number: US-ABBVIE-20P-163-3335529-00

PATIENT
  Sex: Female

DRUGS (1)
  1. IMBRUVICA [Suspect]
     Active Substance: IBRUTINIB
     Indication: CHRONIC LYMPHOCYTIC LEUKAEMIA
     Route: 048
     Dates: start: 20170503

REACTIONS (6)
  - Gastrooesophageal reflux disease [Unknown]
  - Large intestinal stenosis [Unknown]
  - Diarrhoea [Unknown]
  - Anxiety [Unknown]
  - Abdominal pain lower [Unknown]
  - Hiatus hernia [Unknown]
